FAERS Safety Report 5087426-0 (Version None)
Quarter: 2006Q3

REPORT INFORMATION
  Report Type: 
  Country: None (occurrence: None)
  Receive Date: 20060821
  Receipt Date: 20060816
  Transmission Date: 20061208
  Serious: Yes (Hospitalization)
  Sender: FDA-Public Use
  Company Number: HQWYE558116AUG06

PATIENT
  Age: 53 Year
  Sex: Male

DRUGS (3)
  1. PANTOPRAZOLE SODIUM [Suspect]
     Indication: PROPHYLAXIS AGAINST GASTROINTESTINAL ULCER
     Dosage: 20 MG 1X PER 1 DAY ORAL
     Route: 048
     Dates: start: 20060611, end: 20060614
  2. PIROXICAM [Suspect]
     Indication: ARTHRALGIA
     Dosage: 20 MG 2X PER 1 DAY ORAL
     Route: 048
     Dates: start: 20060611, end: 20060614
  3. PIROXICAM [Suspect]
     Indication: ARTHRITIS
     Dosage: 20 MG 2X PER 1 DAY ORAL
     Route: 048
     Dates: start: 20060611, end: 20060614

REACTIONS (1)
  - TOXIC SKIN ERUPTION [None]
